FAERS Safety Report 5490192-8 (Version None)
Quarter: 2007Q4

REPORT INFORMATION
  Report Type: 
  Country: None (occurrence: None)
  Receive Date: 20071017
  Receipt Date: 20071001
  Transmission Date: 20080405
  Serious: Yes (Hospitalization, Other)
  Sender: FDA-Public Use
  Company Number: DSA_61725_2007

PATIENT
  Sex: Female
  Weight: 15.8759 kg

DRUGS (1)
  1. DIASTAT [Suspect]
     Indication: CONVULSION
     Dosage: (5 MG PRN RECTAL)
     Route: 054
     Dates: start: 20070830

REACTIONS (4)
  - DRUG INEFFECTIVE [None]
  - MEDICAL DEVICE COMPLICATION [None]
  - OVERDOSE [None]
  - PHARMACEUTICAL PRODUCT COMPLAINT [None]
